FAERS Safety Report 25441494 (Version 4)
Quarter: 2025Q3

REPORT INFORMATION
  Report Type: Spontaneous
  Country: EU (occurrence: EU)
  Receive Date: 20250616
  Receipt Date: 20250820
  Transmission Date: 20251020
  Serious: Yes (Other)
  Sender: MYLAN
  Company Number: EU-PFIZER INC-202500111919

PATIENT
  Age: 28 Year
  Sex: Female

DRUGS (20)
  1. METHOTREXATE [Suspect]
     Active Substance: METHOTREXATE
     Indication: Behcet^s syndrome
  2. METHOTREXATE [Suspect]
     Active Substance: METHOTREXATE
     Indication: Arthritis
     Route: 065
  3. METHOTREXATE [Suspect]
     Active Substance: METHOTREXATE
     Route: 065
  4. METHOTREXATE [Suspect]
     Active Substance: METHOTREXATE
  5. AZATHIOPRINE [Suspect]
     Active Substance: AZATHIOPRINE
     Indication: Behcet^s syndrome
  6. AZATHIOPRINE [Suspect]
     Active Substance: AZATHIOPRINE
     Route: 065
  7. AZATHIOPRINE [Suspect]
     Active Substance: AZATHIOPRINE
     Route: 065
  8. AZATHIOPRINE [Suspect]
     Active Substance: AZATHIOPRINE
  9. COLCHICINE [Concomitant]
     Active Substance: COLCHICINE
     Indication: Behcet^s syndrome
  10. COLCHICINE [Concomitant]
     Active Substance: COLCHICINE
     Route: 065
  11. COLCHICINE [Concomitant]
     Active Substance: COLCHICINE
     Route: 065
  12. COLCHICINE [Concomitant]
     Active Substance: COLCHICINE
  13. VITAMIN C [Concomitant]
     Active Substance: ASCORBIC ACID
     Indication: Behcet^s syndrome
  14. VITAMIN C [Concomitant]
     Active Substance: ASCORBIC ACID
     Indication: Vitamin supplementation
     Route: 065
  15. VITAMIN C [Concomitant]
     Active Substance: ASCORBIC ACID
     Indication: Prophylaxis
     Route: 065
  16. VITAMIN C [Concomitant]
     Active Substance: ASCORBIC ACID
  17. ADALIMUMAB [Concomitant]
     Active Substance: ADALIMUMAB
     Indication: Product used for unknown indication
  18. ADALIMUMAB [Concomitant]
     Active Substance: ADALIMUMAB
     Route: 065
  19. ADALIMUMAB [Concomitant]
     Active Substance: ADALIMUMAB
     Route: 065
  20. ADALIMUMAB [Concomitant]
     Active Substance: ADALIMUMAB

REACTIONS (6)
  - Hepatitis [Unknown]
  - Diarrhoea [Unknown]
  - Migraine [Unknown]
  - Neutropenia [Unknown]
  - Drug intolerance [Unknown]
  - Off label use [Unknown]
